FAERS Safety Report 5130450-X (Version None)
Quarter: 2006Q4

REPORT INFORMATION
  Report Type: 
  Country: None (occurrence: None)
  Receive Date: 20061013
  Receipt Date: 20060929
  Transmission Date: 20070319
  Serious: Yes (Other)
  Sender: FDA-Public Use
  Company Number: US200610000207

PATIENT
  Age: 73 Year
  Sex: Female

DRUGS (2)
  1. HUMULIN N [Suspect]
     Indication: DIABETES MELLITUS
     Dosage: 14 U,
     Dates: start: 19990101
  2. INSULIN (INSULIN) [Concomitant]

REACTIONS (10)
  - ABASIA [None]
  - BLOOD GLUCOSE INCREASED [None]
  - BONE DISORDER [None]
  - CONDITION AGGRAVATED [None]
  - FALL [None]
  - HIP FRACTURE [None]
  - INFECTION [None]
  - LEG AMPUTATION [None]
  - PHARMACEUTICAL PRODUCT COMPLAINT [None]
  - POOR PERIPHERAL CIRCULATION [None]
